FAERS Safety Report 13770517 (Version 1)
Quarter: 2017Q3

REPORT INFORMATION
  Report Type: Spontaneous
  Country: US (occurrence: US)
  Receive Date: 20170719
  Receipt Date: 20170719
  Transmission Date: 20171127
  Serious: Yes (Other)
  Sender: FDA-Public Use
  Company Number: None

PATIENT
  Age: 61 Year
  Sex: Male
  Weight: 80.1 kg

DRUGS (8)
  1. FISH OIL [Concomitant]
     Active Substance: FISH OIL
  2. PAROXETINE. [Concomitant]
     Active Substance: PAROXETINE
  3. BIOTIN [Concomitant]
     Active Substance: BIOTIN
  4. VITAMIN B12 [Concomitant]
     Active Substance: CYANOCOBALAMIN
  5. THIAMINE. [Concomitant]
     Active Substance: THIAMINE
  6. METFORMIN [Suspect]
     Active Substance: METFORMIN HYDROCHLORIDE
     Indication: GLUCOSE TOLERANCE IMPAIRED
     Dates: start: 20170430, end: 20170716
  7. MAGNESIUM [Concomitant]
     Active Substance: MAGNESIUM
  8. ARRED 2 [Concomitant]

REACTIONS (3)
  - Product substitution issue [None]
  - Blood glucose increased [None]
  - Weight decreased [None]

NARRATIVE: CASE EVENT DATE: 20170716
